FAERS Safety Report 21632278 (Version 1)
Quarter: 2022Q4

REPORT INFORMATION
  Report Type: Spontaneous
  Country: JP (occurrence: JP)
  Receive Date: 20221123
  Receipt Date: 20221123
  Transmission Date: 20230112
  Serious: Yes (Other)
  Sender: FDA-Public Use
  Company Number: JP-SUN PHARMACEUTICAL INDUSTRIES LTD-2022R1-364862

PATIENT
  Age: 58 Year
  Sex: Male

DRUGS (2)
  1. LITHIUM [Suspect]
     Active Substance: LITHIUM
     Indication: Bipolar I disorder
     Dosage: 600 MILLIGRAM, DAILY
     Route: 065
  2. VALPROIC ACID [Concomitant]
     Active Substance: VALPROIC ACID
     Indication: Bipolar I disorder
     Dosage: 1200 MILLIGRAM, DAILY
     Route: 065

REACTIONS (1)
  - Psoriasis [Recovered/Resolved]
